FAERS Safety Report 7550543-7 (Version None)
Quarter: 2011Q2

REPORT INFORMATION
  Report Type: 
  Country: None (occurrence: None)
  Receive Date: 20110615
  Receipt Date: 20110606
  Transmission Date: 20111010
  Serious: Yes (Life-Threatening, Hospitalization, Other)
  Sender: FDA-Public Use
  Company Number: JP-CELGENEUS-087-50794-11052607

PATIENT
  Sex: Female

DRUGS (51)
  1. VIDAZA [Suspect]
     Dosage: 37.5 MILLIGRAM/SQ. METER
     Route: 058
     Dates: start: 20110513, end: 20110519
  2. LANSOPRAZOLE [Concomitant]
     Dosage: 15 MILLIGRAM
     Route: 048
     Dates: start: 20110330, end: 20110602
  3. AUZEI [Concomitant]
     Dosage: 3 DOSAGE FORMS
     Route: 048
     Dates: start: 20110330, end: 20110421
  4. LOXOPROFEN [Concomitant]
     Dosage: 1/4-1/2DF
     Route: 048
     Dates: start: 20110413, end: 20110413
  5. GRANISETRON [Concomitant]
     Dosage: 1 DOSAGE FORMS
     Route: 050
     Dates: start: 20110513, end: 20110519
  6. TPN ELECTROLYTES IN PLASTIC CONTAINER [Concomitant]
     Dosage: 1000 MILLILITER
     Route: 050
     Dates: start: 20110412, end: 20110413
  7. HUMULIN U [Concomitant]
     Route: 050
     Dates: start: 20110419, end: 20110419
  8. VOLVIX [Concomitant]
     Dosage: 1 DOSAGE FORMS
     Route: 050
     Dates: start: 20110428, end: 20110428
  9. ADONA [Concomitant]
     Dosage: 100 MILLIGRAM
     Route: 050
     Dates: start: 20110502, end: 20110502
  10. VALTREX [Concomitant]
     Dosage: 500 MILLIGRAM
     Route: 065
     Dates: start: 20110330, end: 20110602
  11. PRAVASTATIN [Concomitant]
     Dosage: 5 MILLIGRAM
     Route: 048
     Dates: start: 20110330, end: 20110602
  12. ITRACONAZOLE [Concomitant]
     Dosage: 100 MILLIGRAM
     Route: 048
     Dates: start: 20110330, end: 20110418
  13. UNASYN [Concomitant]
     Dosage: 200 MILLIGRAM
     Route: 048
     Dates: start: 20110406, end: 20110415
  14. SPIRONOLACTONE [Concomitant]
     Dosage: 2 DOSAGE FORMS
     Route: 048
     Dates: start: 20110525, end: 20110529
  15. BROACT [Concomitant]
     Dosage: 3 DOSAGE FORMS
     Route: 050
     Dates: start: 20110410, end: 20110413
  16. PENTAZOCINE LACTATE [Concomitant]
     Dosage: 15 MILLIGRAM
     Route: 050
     Dates: start: 20110601, end: 20110601
  17. FLAGYL [Concomitant]
     Dosage: 3 DOSAGE FORMS
     Route: 048
     Dates: start: 20110401, end: 20110410
  18. GRANISETRON [Concomitant]
     Dosage: 2 DOSAGE FORMS
     Route: 048
     Dates: start: 20110330, end: 20110404
  19. OMEGACIN [Concomitant]
     Dosage: 4 DOSAGE FORMS
     Route: 050
     Dates: start: 20110413, end: 20110425
  20. NEUTROGIN [Concomitant]
     Dosage: 100 MILLIGRAM
     Route: 050
     Dates: start: 20110413, end: 20110413
  21. LASIX [Concomitant]
     Route: 050
     Dates: start: 20110527, end: 20110604
  22. POTASSIUM CHLORIDE [Concomitant]
     Dosage: 20 DOSAGE FORMS
     Route: 050
     Dates: start: 20110502, end: 20110502
  23. VOGLIBOSE [Concomitant]
     Dosage: 3 DOSAGE FORMS
     Route: 048
     Dates: start: 20110330, end: 20110412
  24. UNASYN [Concomitant]
     Dosage: 3 DOSAGE FORMS
     Route: 048
     Dates: start: 20110401, end: 20110410
  25. ELNEOPA NO. 1 [Concomitant]
     Dosage: 1000 MILLILITER
     Route: 050
     Dates: start: 20110413, end: 20110414
  26. FULCALIQ [Concomitant]
     Dosage: 1 DOSAGE FORMS
     Route: 050
     Dates: start: 20110413, end: 20110413
  27. LASIX [Concomitant]
     Dosage: 2 MILLILITER
     Route: 050
     Dates: start: 20110428, end: 20110502
  28. LASIX [Concomitant]
     Dosage: 40 MILLIGRAM
     Route: 048
     Dates: start: 20110505, end: 20110529
  29. MORPHINE HYDROCHLORIDE HYDRATE [Concomitant]
     Dosage: 10-2DF
     Route: 050
     Dates: start: 20110601, end: 20110601
  30. AMLODIPINE [Concomitant]
     Dosage: 2.5 MILLIGRAM
     Route: 048
     Dates: start: 20110330, end: 20110602
  31. ZYVOX [Concomitant]
     Dosage: 2 DOSAGE FORMS
     Route: 048
     Dates: start: 20110415, end: 20110415
  32. TAIPERACILIN [Concomitant]
     Dosage: 3 DOSAGE FORMS
     Route: 050
     Dates: start: 20110410, end: 20110413
  33. VITAMEDIN [Concomitant]
     Dosage: 1 DOSAGE FORMS
     Route: 050
     Dates: start: 20110415, end: 20110415
  34. FUNGUARD [Concomitant]
     Dosage: 150 MILLIGRAM
     Route: 050
     Dates: start: 20110418, end: 20110428
  35. AMBISOME [Concomitant]
     Dosage: 100 MILLIGRAM
     Route: 050
     Dates: start: 20110429, end: 20110429
  36. ALBUMIN (HUMAN) [Concomitant]
     Dosage: 100 MILLILITER
     Route: 050
     Dates: start: 20110426, end: 20110509
  37. AMIKACIN [Concomitant]
     Dosage: 400 MILLIGRAM
     Route: 050
     Dates: start: 20110430, end: 20110512
  38. EXACIN [Concomitant]
     Dosage: 400 MILLIGRAM
     Route: 050
     Dates: start: 20110518, end: 20110531
  39. MIYA BM [Concomitant]
     Dosage: 1 MILLIGRAM
     Route: 048
     Dates: start: 20110330, end: 20110413
  40. AMBISOME [Concomitant]
     Dosage: 150 MILLIGRAM
     Route: 050
     Dates: start: 20110518, end: 20110518
  41. MEROPENEM [Concomitant]
     Dosage: 6 GRAM
     Route: 050
     Dates: start: 20110519, end: 20110601
  42. KAZMARIN [Concomitant]
     Dosage: 15 MILLIGRAM
     Route: 048
     Dates: start: 20110330, end: 20110602
  43. MAGMITT [Concomitant]
     Dosage: 1-3DF
     Route: 048
     Dates: start: 20110401, end: 20110602
  44. PASIL [Concomitant]
     Dosage: 2000 MILLIGRAM
     Route: 050
     Dates: start: 20110426, end: 20110509
  45. AMIKACIN [Concomitant]
     Dosage: 400 MILLIGRAM
     Route: 050
     Dates: start: 20110601, end: 20110601
  46. DORIPENEM MONOHYDRATE [Concomitant]
     Dosage: 3 GRAM
     Route: 050
     Dates: start: 20110505, end: 20110505
  47. VIDAZA [Suspect]
     Dosage: 75 MICROGRAM/SQ. METER
     Route: 058
     Dates: start: 20110330, end: 20110405
  48. PRIMPERAN TAB [Concomitant]
     Dosage: 2 DOSAGE FORMS
     Route: 050
     Dates: start: 20110330, end: 20110330
  49. INTRALIPOS 10% [Concomitant]
     Dosage: 1 DOSAGE FORMS
     Route: 050
     Dates: start: 20110418, end: 20110418
  50. DORIPENEM MONOHYDRATE [Concomitant]
     Dosage: 3 GRAM
     Route: 050
     Dates: start: 20110602, end: 20110602
  51. FAMOTIDINE [Concomitant]
     Dosage: 20 MILLIGRAM
     Route: 050
     Dates: start: 20110601, end: 20110602

REACTIONS (20)
  - HYPERNATRAEMIA [None]
  - HYPERBILIRUBINAEMIA [None]
  - HYPERKALAEMIA [None]
  - FLUID RETENTION [None]
  - BLOOD UREA INCREASED [None]
  - PYREXIA [None]
  - HEPATIC MASS [None]
  - CONSTIPATION [None]
  - NEUTROPHIL COUNT DECREASED [None]
  - DIARRHOEA [None]
  - HYPONATRAEMIA [None]
  - HYPOALBUMINAEMIA [None]
  - NAUSEA [None]
  - HYPOKALAEMIA [None]
  - PNEUMONIA [None]
  - HAEMORRHAGE SUBCUTANEOUS [None]
  - VOMITING [None]
  - RASH [None]
  - SEPSIS [None]
  - HYPERGLYCAEMIA [None]
